FAERS Safety Report 11005742 (Version 3)
Quarter: 2015Q3

REPORT INFORMATION
  Report Type: Spontaneous
  Country: DE (occurrence: DE)
  Receive Date: 20150409
  Receipt Date: 20150727
  Transmission Date: 20151125
  Serious: Yes (Death, Other)
  Sender: FDA-Public Use
  Company Number: DE-BRISTOL-MYERS SQUIBB COMPANY-BMS-2015-021112

PATIENT
  Age: 93 Year
  Sex: Female

DRUGS (2)
  1. ELIQUIS [Suspect]
     Active Substance: APIXABAN
     Indication: ATRIAL FIBRILLATION
     Dosage: 2.5 MG, BID
     Route: 065
  2. ELIQUIS [Suspect]
     Active Substance: APIXABAN
     Indication: THROMBOSIS PROPHYLAXIS

REACTIONS (5)
  - Haemorrhage [Unknown]
  - General physical health deterioration [Fatal]
  - Skin disorder [Fatal]
  - Spontaneous haematoma [Fatal]
  - Impaired healing [Fatal]

NARRATIVE: CASE EVENT DATE: 201501
